FAERS Safety Report 4322995-7 (Version None)
Quarter: 2004Q1

REPORT INFORMATION
  Report Type: 
  Country: None (occurrence: None)
  Receive Date: 20040322
  Receipt Date: 20040308
  Transmission Date: 20041129
  Serious: Yes (Hospitalization, Congenital Anomaly)
  Sender: FDA-Public Use
  Company Number: MK200403-0020-2

PATIENT
  Sex: Male

DRUGS (3)
  1. ANAFRANIL [Suspect]
     Dosage: TRANSPLACENTAL
     Route: 064
     Dates: end: 20040128
  2. PAXIL [Suspect]
     Dates: end: 20040128
  3. DEPAKENE [Suspect]
     Dates: end: 20040128

REACTIONS (15)
  - CARDIAC MURMUR [None]
  - CONGENITAL ATRIAL SEPTAL DEFECT [None]
  - CYANOSIS NEONATAL [None]
  - DEATH [None]
  - FOETAL VALPROATE SYNDROME [None]
  - HYPERTONIA NEONATAL [None]
  - INTERCOSTAL RETRACTION [None]
  - IRRITABILITY [None]
  - MATERNAL DRUGS AFFECTING FOETUS [None]
  - MOVEMENT DISORDER [None]
  - NEONATAL RESPIRATORY ACIDOSIS [None]
  - NEONATAL TACHYPNOEA [None]
  - RESPIRATORY DISORDER NEONATAL [None]
  - TREMOR NEONATAL [None]
  - TRICUSPID VALVE INCOMPETENCE [None]
